FAERS Safety Report 5942103-6 (Version None)
Quarter: 2008Q4

REPORT INFORMATION
  Report Type: 
  Country: None (occurrence: None)
  Receive Date: 20081105
  Receipt Date: 20081031
  Transmission Date: 20090506
  Serious: Yes (Disabling)
  Sender: FDA-Public Use
  Company Number: US-ALLERGAN-0813856US

PATIENT
  Sex: Female

DRUGS (5)
  1. BOTOX [Suspect]
     Indication: BLEPHAROSPASM
     Dosage: 100 UNITS, SINGLE
     Route: 030
     Dates: start: 20080801, end: 20080801
  2. BOTOX [Suspect]
     Dosage: UNK, UNK
     Route: 030
     Dates: start: 20040101
  3. CLONAZEPAM [Concomitant]
     Dosage: 1 MG, BID
  4. DYAZIDE [Concomitant]
     Dosage: UNK, QD
  5. ATACAND [Concomitant]
     Dosage: 16 MG, QD

REACTIONS (3)
  - DRY MOUTH [None]
  - FACIAL PALSY [None]
  - SPEECH DISORDER [None]
